FAERS Safety Report 20956842 (Version 3)
Quarter: 2022Q2

REPORT INFORMATION
  Report Type: Spontaneous
  Country: IT (occurrence: IT)
  Receive Date: 20220614
  Receipt Date: 20220624
  Transmission Date: 20220721
  Serious: Yes (Other)
  Sender: FDA-Public Use
  Company Number: IT-002147023-NVSC2022IT117434

PATIENT
  Age: 44 Year
  Sex: Female

DRUGS (4)
  1. ZOLEDRONIC ACID [Suspect]
     Active Substance: ZOLEDRONIC ACID
     Indication: Osteoporosis
     Dosage: 4 MILLIGRAM, Q28D, (4 MG/28 DAYS)
     Route: 065
     Dates: start: 201710
  2. RYDAPT [Suspect]
     Active Substance: MIDOSTAURIN
     Indication: Product used for unknown indication
     Dosage: 200 MILLIGRAM, QD (100 MG, BID)
     Route: 065
  3. INTERFERON ALFA NOS [Concomitant]
     Active Substance: INTERFERON ALFA-2A OR INTERFERON ALFA-2B
     Indication: Product used for unknown indication
     Dosage: UNK
     Route: 065
  4. VITAMIN D NOS [Concomitant]
     Active Substance: VITAMIN D NOS
     Indication: Product used for unknown indication
     Dosage: UNK
     Route: 065

REACTIONS (7)
  - Lumbar vertebral fracture [Unknown]
  - Spinal compression fracture [Recovered/Resolved]
  - Tryptase increased [Unknown]
  - Bone marrow oedema [Unknown]
  - Oesophagitis [Unknown]
  - Bone lesion [Recovered/Resolved with Sequelae]
  - Oesophagogastroduodenoscopy abnormal [Unknown]
